FAERS Safety Report 8903965 (Version 1)
Quarter: 2012Q4

REPORT INFORMATION
  Report Type: 
  Country: US (occurrence: US)
  Receive Date: 20121113
  Receipt Date: 20121113
  Transmission Date: 20130627
  Serious: No
  Sender: FDA-Public Use
  Company Number: US-AMGEN-USASP2012009724

PATIENT
  Sex: Male

DRUGS (5)
  1. ENBREL [Suspect]
     Indication: PRODUCT USED FOR UNKNOWN INDICATION
     Dosage: 50 mg, qwk
     Route: 058
  2. BONIVA [Concomitant]
     Dosage: 150 mg, UNK
  3. PLAQUENIL                          /00072602/ [Concomitant]
     Dosage: 200 mg, UNK
  4. VITAMIN C                          /00008001/ [Concomitant]
     Dosage: 1000 mg, UNK
  5. FISH OIL [Concomitant]

REACTIONS (2)
  - Vision blurred [Unknown]
  - Fungal infection [Unknown]
